FAERS Safety Report 4392749-4 (Version None)
Quarter: 2004Q3

REPORT INFORMATION
  Report Type: 
  Country: None (occurrence: None)
  Receive Date: 20040707
  Receipt Date: 20040630
  Transmission Date: 20050211
  Serious: Yes (Life-Threatening)
  Sender: FDA-Public Use
  Company Number: 2004UW09508

PATIENT
  Age: 48 Year
  Sex: Male
  Weight: 88.4514 kg

DRUGS (6)
  1. CRESTOR [Suspect]
     Indication: BLOOD CHOLESTEROL INCREASED
     Dosage: 10 MG QD PO
     Route: 048
     Dates: start: 20040109, end: 20040310
  2. DOXYCYCLINE [Concomitant]
  3. PRAVACHOL [Concomitant]
  4. H2 BLOCKER ^RATIOPHARM^ [Concomitant]
  5. PREVACID [Concomitant]
  6. PRILOSEC [Concomitant]

REACTIONS (15)
  - ACQUIRED OESOPHAGEAL WEB [None]
  - ALANINE AMINOTRANSFERASE INCREASED [None]
  - ANOREXIA [None]
  - ASTHENIA [None]
  - CHROMATURIA [None]
  - DEPRESSION [None]
  - DIFFICULTY IN WALKING [None]
  - DYSPHAGIA [None]
  - FATIGUE [None]
  - HYPERCHOLESTEROLAEMIA [None]
  - HYPERTRIGLYCERIDAEMIA [None]
  - OESOPHAGEAL STENOSIS [None]
  - REBOUND EFFECT [None]
  - REFLUX OESOPHAGITIS [None]
  - SOMNOLENCE [None]
